FAERS Safety Report 21932075 (Version 3)
Quarter: 2023Q1

REPORT INFORMATION
  Report Type: Report from Study
  Country: DE (occurrence: None)
  Receive Date: 20230131
  Receipt Date: 20230331
  Transmission Date: 20230418
  Serious: Yes (Congenital Anomaly, Other)
  Sender: FDA-Public Use
  Company Number: DE-Merck Healthcare KGaA-9379725

PATIENT
  Sex: Female

DRUGS (1)
  1. REBIF [Suspect]
     Active Substance: INTERFERON BETA-1A
     Indication: Multiple sclerosis
     Route: 064

REACTIONS (5)
  - Trisomy 21 [Unknown]
  - Premature baby [Unknown]
  - Poor feeding infant [Unknown]
  - Low birth weight baby [Unknown]
  - Foetal exposure timing unspecified [Recovered/Resolved]
